FAERS Safety Report 5564967-0 (Version None)
Quarter: 2007Q4

REPORT INFORMATION
  Report Type: 
  Country: None (occurrence: None)
  Receive Date: 20071218
  Receipt Date: 20071210
  Transmission Date: 20080405
  Serious: Yes (Hospitalization)
  Sender: FDA-Public Use
  Company Number: B0499882A

PATIENT
  Age: 11 Year
  Sex: Female

DRUGS (3)
  1. ZOVIRAX [Suspect]
     Indication: CONVULSION
     Dosage: 1200MG PER DAY
     Route: 042
     Dates: start: 20071202, end: 20071203
  2. CEFTRIAXONE [Suspect]
     Indication: CONVULSION
     Dosage: 2G PER DAY
     Route: 042
     Dates: start: 20071202, end: 20071203
  3. ACETAMINOPHEN [Concomitant]
     Dosage: 500MG PER DAY
     Route: 048
     Dates: start: 20071202, end: 20071202

REACTIONS (2)
  - RASH [None]
  - RESPIRATORY DISORDER [None]
